FAERS Safety Report 8189133-4 (Version None)
Quarter: 2012Q1

REPORT INFORMATION
  Report Type: 
  Country: None (occurrence: None)
  Receive Date: 20120307
  Receipt Date: 20120224
  Transmission Date: 20120608
  Serious: Yes (Other)
  Sender: FDA-Public Use
  Company Number: DE-AMGEN-DEUSP2012004482

PATIENT
  Sex: Male
  Weight: 93 kg

DRUGS (1)
  1. ENBREL [Suspect]
     Indication: RHEUMATOID ARTHRITIS
     Dosage: 50 MG, WEEKLY
     Route: 058
     Dates: start: 20111101, end: 20120101

REACTIONS (4)
  - INJECTION SITE SWELLING [None]
  - INJECTION SITE PRURITUS [None]
  - ERYTHEMA [None]
  - RHEUMATOID ARTHRITIS [None]
